FAERS Safety Report 4721641-8 (Version None)
Quarter: 2005Q3

REPORT INFORMATION
  Report Type: 
  Country: None (occurrence: None)
  Receive Date: 20050721
  Receipt Date: 20050131
  Transmission Date: 20060218
  Serious: No
  Sender: FDA-Public Use
  Company Number: US-BRISTOL-MYERS SQUIBB COMPANY-12844023

PATIENT
  Age: 49 Year
  Sex: Male
  Weight: 75 kg

DRUGS (6)
  1. COUMADIN [Suspect]
     Indication: HEART VALVE REPLACEMENT
     Dosage: ON VARYING DOSES FOR 1 YEAR; DOSE CHANGED AS NEEDED; CURRENTLY 7.5 MG (1 TABLET) DAILY
     Route: 048
  2. FLAXSEED [Interacting]
  3. ASCORBIC ACID [Interacting]
  4. VITAMIN E [Interacting]
  5. MULTI-VITAMIN [Interacting]
  6. CO-Q-10 [Interacting]

REACTIONS (2)
  - DRUG INTERACTION [None]
  - INTERNATIONAL NORMALISED RATIO FLUCTUATION [None]
